FAERS Safety Report 4315571-3 (Version None)
Quarter: 2004Q1

REPORT INFORMATION
  Report Type: 
  Country: None (occurrence: None)
  Receive Date: 20040311
  Receipt Date: 20040308
  Transmission Date: 20041129
  Serious: Yes (Disabling)
  Sender: FDA-Public Use
  Company Number: US-ROCHE-361096

PATIENT
  Age: 54 Year
  Sex: Female

DRUGS (2)
  1. ROCEPHIN [Suspect]
     Indication: PNEUMONIA
     Route: 042
     Dates: start: 20030425
  2. GENTAMICIN [Suspect]
     Indication: PNEUMONIA
     Route: 065
     Dates: start: 20030425

REACTIONS (3)
  - BALANCE DISORDER [None]
  - CONFUSIONAL STATE [None]
  - DEAFNESS [None]
